FAERS Safety Report 5149730-7 (Version None)
Quarter: 2006Q4

REPORT INFORMATION
  Report Type: 
  Country: None (occurrence: None)
  Receive Date: 20061113
  Receipt Date: 20061101
  Transmission Date: 20070319
  Serious: Yes (Other)
  Sender: FDA-Public Use
  Company Number: 2006GB01979

PATIENT
  Age: 30 Year
  Sex: Female

DRUGS (4)
  1. LIGNOCAINE [Suspect]
     Route: 030
     Dates: start: 20060714, end: 20060714
  2. BENZATHINE PENICILLIN G [Suspect]
     Dosage: 2.4 MILLION INTERNATIONAL UNITS
     Route: 030
     Dates: start: 20060714, end: 20060714
  3. BECLOMETHASONE DIPROPIONATE [Concomitant]
     Route: 055
  4. SALBUTAMOL [Concomitant]
     Route: 055

REACTIONS (3)
  - CHEST DISCOMFORT [None]
  - FEELING HOT [None]
  - PRURITUS [None]
